FAERS Safety Report 7524040-9 (Version None)
Quarter: 2011Q2

REPORT INFORMATION
  Report Type: 
  Country: None (occurrence: None)
  Receive Date: 20110605
  Receipt Date: 20110520
  Transmission Date: 20111010
  Serious: No
  Sender: FDA-Public Use
  Company Number: US-B.I. PHARMACEUTICALS,INC./RIDGEFIELD-2011-BP-13663BP

PATIENT
  Age: 75 Year
  Sex: Female

DRUGS (9)
  1. LISINOPRIL [Concomitant]
     Indication: HYPERTENSION
     Dosage: 20 MG
  2. ZOCOR [Concomitant]
     Indication: BLOOD CHOLESTEROL INCREASED
     Dosage: 10 MG
  3. XANAX [Concomitant]
     Indication: DEPRESSION
  4. XANAX [Concomitant]
     Indication: ANXIETY
  5. TRIAMTERINE [Concomitant]
     Indication: HYPERTENSION
     Dates: start: 20110301
  6. LEXAPRO [Concomitant]
     Indication: DEPRESSION
     Dates: start: 20100101
  7. LEXAPRO [Concomitant]
     Indication: ANXIETY
  8. PRADAXA [Suspect]
     Indication: ATRIAL FIBRILLATION
     Dosage: 300 MG
     Route: 048
     Dates: start: 20101201
  9. AMIODARONE HCL [Concomitant]
     Indication: ATRIAL FIBRILLATION
     Dosage: 200 MG

REACTIONS (3)
  - CONTUSION [None]
  - GLOSSODYNIA [None]
  - ORAL PAIN [None]
